FAERS Safety Report 6411225-8 (Version None)
Quarter: 2009Q4

REPORT INFORMATION
  Report Type: 
  Country: None (occurrence: None)
  Receive Date: 20091020
  Receipt Date: 20091005
  Transmission Date: 20100525
  Serious: Yes (Life-Threatening, Hospitalization)
  Sender: FDA-Public Use
  Company Number: 1000009152

PATIENT
  Age: 73 Year
  Sex: Male

DRUGS (1)
  1. ACAMPROSATE (ACAMPROSATE CALCIUM) (TABLETS) [Suspect]
     Indication: ALCOHOL WITHDRAWAL SYNDROME
     Dosage: 6 DOSAGE FORMS (1 DOSAGE FORMS,6 IN 1 D),ORAL
     Route: 048

REACTIONS (3)
  - CYTOLYTIC HEPATITIS [None]
  - GENERAL PHYSICAL HEALTH DETERIORATION [None]
  - HEPATITIS CHOLESTATIC [None]
